FAERS Safety Report 24746681 (Version 2)
Quarter: 2024Q4

REPORT INFORMATION
  Report Type: Spontaneous
  Country: US (occurrence: US)
  Receive Date: 20241218
  Receipt Date: 20241220
  Transmission Date: 20250114
  Serious: No
  Sender: NOVARTIS
  Company Number: US-002147023-NVSC2024US237910

PATIENT
  Age: 29 Year
  Sex: Female

DRUGS (1)
  1. COSENTYX [Suspect]
     Active Substance: SECUKINUMAB
     Indication: Hidradenitis
     Dosage: 1 DOSAGE FORM, Q2W (1 INJECTION SUBQ ONCE EVERY 2 WEEKS)
     Route: 065

REACTIONS (2)
  - Hidradenitis [Unknown]
  - Condition aggravated [Unknown]
